FAERS Safety Report 16309487 (Version 1)
Quarter: 2019Q2

REPORT INFORMATION
  Report Type: Report from Study
  Country: None (occurrence: HU)
  Receive Date: 20190514
  Receipt Date: 20190514
  Transmission Date: 20190711
  Serious: Yes (Hospitalization)
  Sender: FDA-Public Use
  Company Number: HU-BAUSCH-BL-2019-013982

PATIENT
  Sex: Female

DRUGS (2)
  1. CHLORDIAZEPOXIDE. [Suspect]
     Active Substance: CHLORDIAZEPOXIDE
     Indication: SUICIDE ATTEMPT
     Route: 065
  2. DIAZEPAM. [Suspect]
     Active Substance: DIAZEPAM
     Indication: SUICIDE ATTEMPT
     Route: 065

REACTIONS (3)
  - Suicide attempt [Unknown]
  - Poisoning deliberate [Unknown]
  - Maternal exposure during pregnancy [Unknown]
